FAERS Safety Report 15725590 (Version 1)
Quarter: 2018Q4

REPORT INFORMATION
  Report Type: Spontaneous
  Country: PL (occurrence: PL)
  Receive Date: 20181215
  Receipt Date: 20181215
  Transmission Date: 20190205
  Serious: Yes (Other)
  Sender: FDA-Public Use
  Company Number: PL-ACCORD-096298

PATIENT
  Age: 28 Year
  Sex: Male

DRUGS (3)
  1. LEVETIRACETAM. [Suspect]
     Active Substance: LEVETIRACETAM
     Indication: GENERALISED TONIC-CLONIC SEIZURE
     Dosage: 1500 MG, QD
     Dates: start: 200805
  2. CARBAMAZEPINE. [Suspect]
     Active Substance: CARBAMAZEPINE
     Indication: EPILEPSY
     Dosage: 600 MG, QD
     Route: 065
  3. OXCARBAZEPINE. [Suspect]
     Active Substance: OXCARBAZEPINE
     Indication: AUTOMATISM EPILEPTIC
     Dosage: 1650 MG, QD
     Route: 065

REACTIONS (5)
  - Epilepsy [Unknown]
  - Neurotoxicity [Unknown]
  - Condition aggravated [Unknown]
  - Generalised tonic-clonic seizure [Unknown]
  - Drug effect incomplete [Unknown]

NARRATIVE: CASE EVENT DATE: 200805
